FAERS Safety Report 9978420 (Version 1)
Quarter: 2014Q1

REPORT INFORMATION
  Report Type: Report from Study
  Country: US (occurrence: US)
  Receive Date: 20140306
  Receipt Date: 20140306
  Transmission Date: 20141002
  Serious: Yes (Other)
  Sender: FDA-Public Use
  Company Number: US-ABBVIE-13P-163-1173281-00

PATIENT
  Age: 0 Year
  Sex: Male

DRUGS (11)
  1. HUMIRA [Suspect]
     Indication: RHEUMATOID ARTHRITIS
  2. CYMBALTA [Suspect]
     Indication: NECK PAIN
     Dates: start: 20130701
  3. LISINOPRIL [Suspect]
     Indication: PRODUCT USED FOR UNKNOWN INDICATION
     Dates: start: 201309, end: 201309
  4. OMEPRAZOLE [Concomitant]
     Indication: GASTROOESOPHAGEAL REFLUX DISEASE
     Dosage: PILL
  5. GENERIC IMITREX INJECTABLE [Concomitant]
     Indication: MIGRAINE
  6. MAXALT [Concomitant]
     Indication: MIGRAINE
  7. UNKNOWN HYPERTENSION MEDICATION [Concomitant]
     Indication: PRODUCT USED FOR UNKNOWN INDICATION
     Dosage: HAS BEEN CHANGED TWICE SINCE
  8. AMLODIPINE [Concomitant]
  9. AMLODIPINE [Concomitant]
  10. PREDNISONE [Concomitant]
     Dosage: 5 OR 10MG
     Dates: end: 20130918
  11. PREDNISONE [Concomitant]

REACTIONS (16)
  - Anaphylactic reaction [Unknown]
  - Swelling face [Unknown]
  - Migraine [Recovering/Resolving]
  - Dizziness [Not Recovered/Not Resolved]
  - Dizziness [Not Recovered/Not Resolved]
  - Lethargy [Not Recovered/Not Resolved]
  - Dizziness [Not Recovered/Not Resolved]
  - Tinnitus [Not Recovered/Not Resolved]
  - Fatigue [Not Recovered/Not Resolved]
  - Flushing [Not Recovered/Not Resolved]
  - Feeling hot [Not Recovered/Not Resolved]
  - Hyperhidrosis [Not Recovered/Not Resolved]
  - Palpitations [Not Recovered/Not Resolved]
  - Intraocular pressure increased [Not Recovered/Not Resolved]
  - Arthralgia [Not Recovered/Not Resolved]
  - Feeling abnormal [Not Recovered/Not Resolved]
